FAERS Safety Report 26159912 (Version 1)
Quarter: 2025Q4

REPORT INFORMATION
  Report Type: Spontaneous
  Country: EU (occurrence: None)
  Receive Date: 20251216
  Receipt Date: 20251216
  Transmission Date: 20260118
  Serious: Yes (Other)
  Sender: UCB
  Company Number: EU-UCBSA-2025078291

PATIENT

DRUGS (1)
  1. BIMEKIZUMAB [Suspect]
     Active Substance: BIMEKIZUMAB
     Indication: Hidradenitis
     Dosage: 320 MILLIGRAM, EV 2 WEEKS(QOW)

REACTIONS (10)
  - Angina pectoris [Unknown]
  - Dyshidrotic eczema [Unknown]
  - Condition aggravated [Unknown]
  - Impetigo [Unknown]
  - Conjunctivitis [Unknown]
  - Ear infection [Unknown]
  - Folliculitis [Unknown]
  - Psoriasis [Unknown]
  - Off label use [Unknown]
  - Drug intolerance [Unknown]
